FAERS Safety Report 5747601-6 (Version None)
Quarter: 2008Q2

REPORT INFORMATION
  Report Type: 
  Country: None (occurrence: None)
  Receive Date: 20080523
  Receipt Date: 20080512
  Transmission Date: 20081010
  Serious: Yes (Other)
  Sender: FDA-Public Use
  Company Number: DE-GILEAD-2008-0015563

PATIENT
  Age: 51 Year
  Sex: Male
  Weight: 86 kg

DRUGS (7)
  1. TRUVADA [Suspect]
     Route: 048
     Dates: start: 20060407
  2. EFAVIRENZ [Concomitant]
     Dates: start: 20060407
  3. PREDNISOLONE [Concomitant]
     Dates: start: 20020214, end: 20060910
  4. PREDNISOLONE [Concomitant]
     Dates: start: 20060921, end: 20070515
  5. PREDNISOLONE [Concomitant]
     Dates: start: 20070516
  6. METOPROLOL 50 [Concomitant]
     Dates: start: 20030919, end: 20070917
  7. METOPROLOL 50 [Concomitant]
     Dates: start: 20070918

REACTIONS (1)
  - VASCULITIS [None]
